FAERS Safety Report 9376678 (Version 1)
Quarter: 2013Q3

REPORT INFORMATION
  Report Type: Spontaneous
  Country: US (occurrence: US)
  Receive Date: 20130701
  Receipt Date: 20130701
  Transmission Date: 20140515
  Serious: No
  Sender: FDA-Public Use
  Company Number: US-009507513-1306USA004602

PATIENT
  Age: 52 Year
  Sex: Male

DRUGS (1)
  1. AZASITE [Suspect]
     Dosage: ONE DROP EACH EYE TWICE A DAY FOR THE FIRST TWO DAYS, ONE DROP EACH EYE ONCE A DAY FOR NEXT 5 DAYS
     Route: 047
     Dates: start: 201306

REACTIONS (3)
  - Drug dose omission [Unknown]
  - Product packaging quantity issue [Unknown]
  - No adverse event [Unknown]
